FAERS Safety Report 8180383-X (Version None)
Quarter: 2012Q1

REPORT INFORMATION
  Report Type: 
  Country: None (occurrence: None)
  Receive Date: 20120302
  Receipt Date: 20120227
  Transmission Date: 20120608
  Serious: Yes (Death)
  Sender: FDA-Public Use
  Company Number: JP-SANOFI-AVENTIS-2012SA008493

PATIENT
  Age: 74 Year
  Sex: Male

DRUGS (2)
  1. THERAPEUTIC RADIOPHARMACEUTICALS [Suspect]
     Indication: OESOPHAGEAL CARCINOMA
     Dosage: MEDIAN VALUE FOR TOTAL DOSE OF RADIATION: 60 GY
     Route: 065
  2. TAXOTERE [Suspect]
     Indication: OESOPHAGEAL CARCINOMA
     Dosage: ONCE PER TWO WEEKS
     Route: 042
     Dates: start: 20080930, end: 20081029

REACTIONS (1)
  - INTERSTITIAL LUNG DISEASE [None]
